FAERS Safety Report 18319321 (Version 1)
Quarter: 2020Q3

REPORT INFORMATION
  Report Type: Spontaneous
  Country: US (occurrence: US)
  Receive Date: 20200928
  Receipt Date: 20200928
  Transmission Date: 20201103
  Serious: No
  Sender: FDA-Public Use
  Company Number: US-AMGEN-USASP2020155708

PATIENT
  Age: 71 Year
  Sex: Female

DRUGS (2)
  1. ALENDRONATE [Concomitant]
     Active Substance: ALENDRONATE SODIUM
     Dosage: UNK
  2. EVENITY [Suspect]
     Active Substance: ROMOSOZUMAB-AQQG
     Indication: OSTEOPOROSIS POSTMENOPAUSAL
     Dosage: 210 MILLIGRAM, QMO
     Route: 065

REACTIONS (2)
  - Nausea [Unknown]
  - Dizziness [Unknown]
